FAERS Safety Report 18623848 (Version 3)
Quarter: 2021Q1

REPORT INFORMATION
  Report Type: Report from Study
  Country: CL (occurrence: CL)
  Receive Date: 20201216
  Receipt Date: 20210331
  Transmission Date: 20210419
  Serious: Yes (Hospitalization, Other)
  Sender: FDA-Public Use
  Company Number: CL-TAKEDA-2020TUS047066

PATIENT
  Age: 59 Year
  Sex: Male

DRUGS (2)
  1. BORTEZOMIB. [Suspect]
     Active Substance: BORTEZOMIB
     Indication: PLASMA CELL MYELOMA
     Dosage: UNK
     Route: 065
  2. DARZALEX [Suspect]
     Active Substance: DARATUMUMAB
     Indication: PLASMA CELL MYELOMA
     Dosage: 16 MILLIGRAM/KILOGRAM
     Route: 042
     Dates: start: 20200626

REACTIONS (5)
  - Meniscus injury [Unknown]
  - Paraesthesia oral [Unknown]
  - Bone marrow transplant [Unknown]
  - Myopia [Unknown]
  - Hypoacusis [Unknown]

NARRATIVE: CASE EVENT DATE: 202009
